FAERS Safety Report 13433768 (Version 1)
Quarter: 2017Q2

REPORT INFORMATION
  Report Type: Spontaneous
  Country: FR (occurrence: FR)
  Receive Date: 20170412
  Receipt Date: 20170412
  Transmission Date: 20170830
  Serious: Yes (Hospitalization)
  Sender: FDA-Public Use
  Company Number: FR-DSJP-DSE-2017-111435

PATIENT

DRUGS (3)
  1. LANSOPRAZOLE. [Concomitant]
     Active Substance: LANSOPRAZOLE
     Indication: PROPHYLAXIS AGAINST GASTROINTESTINAL ULCER
     Dosage: 15 MG, QD
     Route: 048
     Dates: start: 20160920, end: 20161005
  2. AXELER 40 MG/ 10 MG [Suspect]
     Active Substance: AMLODIPINE BESYLATE\OLMESARTAN MEDOXOMIL
     Indication: HYPERTENSION
     Dosage: 40/10MG, QD
     Route: 048
     Dates: end: 20161009
  3. BI-PROFENID [Suspect]
     Active Substance: KETOPROFEN
     Indication: MYALGIA
     Dosage: 100 MG, QD
     Route: 048
     Dates: start: 20160920, end: 20161005

REACTIONS (6)
  - Acute kidney injury [Recovering/Resolving]
  - Oesophagitis [Recovering/Resolving]
  - Diarrhoea [Recovering/Resolving]
  - Gastric ulcer [Recovering/Resolving]
  - Gastritis [Recovering/Resolving]
  - Vomiting [Recovering/Resolving]

NARRATIVE: CASE EVENT DATE: 201610
